FAERS Safety Report 13232293 (Version 1)
Quarter: 2017Q1

REPORT INFORMATION
  Report Type: Spontaneous
  Country: TR (occurrence: TR)
  Receive Date: 20170214
  Receipt Date: 20170214
  Transmission Date: 20170428
  Serious: Yes (Other)
  Sender: FDA-Public Use
  Company Number: TR-BAUSCH-BL-2017-003805

PATIENT
  Age: 35 Year
  Sex: Female

DRUGS (14)
  1. ACYCLOVIR. [Suspect]
     Active Substance: ACYCLOVIR
     Indication: LACRIMATION INCREASED
     Route: 065
  2. OFLOXACIN. [Suspect]
     Active Substance: OFLOXACIN
     Indication: LACRIMATION INCREASED
     Route: 065
  3. GOLDEN EYE (PROPAMIDINE ISETHIONATE) [Suspect]
     Active Substance: PROPAMIDINE ISETHIONATE
     Indication: ACANTHAMOEBA KERATITIS
     Route: 065
  4. OFLOXACIN. [Suspect]
     Active Substance: OFLOXACIN
     Indication: EYE PAIN
  5. GOLDEN EYE (MERCURIC OXIDE) [Suspect]
     Active Substance: MERCURIC OXIDE
     Indication: ACANTHAMOEBA KERATITIS
     Route: 065
  6. NEOSPORIN [Suspect]
     Active Substance: BACITRACIN ZINC\NEOMYCIN SULFATE\POLYMYXIN B SULFATE
     Indication: ACANTHAMOEBA KERATITIS
     Route: 065
  7. ACYCLOVIR. [Suspect]
     Active Substance: ACYCLOVIR
     Indication: EYE INFECTION
  8. ITRASPOR [Suspect]
     Active Substance: ITRACONAZOLE
     Indication: ACANTHAMOEBA KERATITIS
     Dosage: 1X2
     Route: 048
  9. DEXAMETHASONE. [Suspect]
     Active Substance: DEXAMETHASONE
     Indication: POSTOPERATIVE CARE
     Route: 065
  10. ACYCLOVIR. [Suspect]
     Active Substance: ACYCLOVIR
     Indication: EYE PAIN
  11. OFLOXACIN. [Suspect]
     Active Substance: OFLOXACIN
     Indication: EYE INFECTION
  12. ATROPINE. [Suspect]
     Active Substance: ATROPINE
     Indication: ACANTHAMOEBA KERATITIS
     Route: 065
  13. TOBRAMYCIN. [Suspect]
     Active Substance: TOBRAMYCIN
     Indication: ACANTHAMOEBA KERATITIS
     Route: 065
  14. EXOCIN [Suspect]
     Active Substance: OFLOXACIN
     Indication: ACANTHAMOEBA KERATITIS
     Dosage: 6X3
     Route: 065

REACTIONS (4)
  - Condition aggravated [Unknown]
  - Pneumonia streptococcal [Unknown]
  - Drug ineffective [Unknown]
  - Acanthamoeba keratitis [Unknown]
